FAERS Safety Report 9964145 (Version 2)
Quarter: 2014Q1

REPORT INFORMATION
  Report Type: Spontaneous
  Country: US (occurrence: US)
  Receive Date: 20140305
  Receipt Date: 20140312
  Transmission Date: 20141002
  Serious: Yes (Other)
  Sender: FDA-Public Use
  Company Number: US-BAXTER-2014BAX011218

PATIENT
  Sex: Male

DRUGS (6)
  1. DIANEAL LOW CALCIUM [Suspect]
     Indication: RENAL FAILURE CHRONIC
     Route: 033
     Dates: start: 201308, end: 20131226
  2. DIANEAL LOW CALCIUM [Suspect]
     Route: 033
     Dates: start: 20140203
  3. DIANEAL LOW CALCIUM [Suspect]
     Indication: RENAL FAILURE CHRONIC
     Route: 033
     Dates: start: 201308, end: 20131226
  4. DIANEAL LOW CALCIUM [Suspect]
     Route: 033
     Dates: start: 20140203
  5. EXTRANEAL [Suspect]
     Indication: RENAL FAILURE CHRONIC
     Dosage: LAST FILL
     Route: 033
     Dates: start: 201308, end: 20131226
  6. EXTRANEAL [Suspect]
     Dosage: LAST FILL
     Route: 033
     Dates: start: 20140203

REACTIONS (3)
  - Umbilical hernia [Recovered/Resolved]
  - Condition aggravated [Recovered/Resolved]
  - Ultrafiltration failure [Recovering/Resolving]
